FAERS Safety Report 4799119-5 (Version None)
Quarter: 2005Q4

REPORT INFORMATION
  Report Type: 
  Country: None (occurrence: None)
  Receive Date: 20051014
  Receipt Date: 20050718
  Transmission Date: 20060501
  Serious: Yes (Hospitalization)
  Sender: FDA-Public Use
  Company Number: US-MERCK-0507USA02933

PATIENT
  Age: 29 Year
  Sex: Female
  Weight: 82 kg

DRUGS (4)
  1. VIOXX [Suspect]
     Indication: GANGLION
     Route: 048
     Dates: start: 20030117, end: 20031001
  2. IBUPROFEN [Concomitant]
     Indication: PAIN
     Route: 048
  3. IBUPROFEN [Concomitant]
     Indication: HEADACHE
     Route: 048
  4. ORTHO NOVUM 2/50 21 TAB [Suspect]
     Indication: CONTRACEPTION
     Route: 048
     Dates: end: 20031001

REACTIONS (7)
  - BUNION [None]
  - DEEP VEIN THROMBOSIS [None]
  - LOBAR PNEUMONIA [None]
  - PAIN IN EXTREMITY [None]
  - PLEURISY [None]
  - PULMONARY EMBOLISM [None]
  - UPPER RESPIRATORY TRACT INFECTION [None]
